FAERS Safety Report 8982381 (Version 1)
Quarter: 2012Q4

REPORT INFORMATION
  Report Type: 
  Country: US (occurrence: US)
  Receive Date: 20121212
  Receipt Date: 20121212
  Transmission Date: 20130627
  Serious: Yes (Other)
  Sender: FDA-Public Use
  Company Number: US-ASTELLAS-CID000000002114726

PATIENT
  Sex: Female

DRUGS (1)
  1. TARCEVA [Suspect]
     Indication: MALIGNANT RESPIRATORY TRACT NEOPLASM
     Route: 065

REACTIONS (5)
  - Metastases to spine [Unknown]
  - Alopecia [Unknown]
  - Rash [Unknown]
  - Eye disorder [Unknown]
  - Metastases to bone [Unknown]
